FAERS Safety Report 4815996-3 (Version None)
Quarter: 2005Q4

REPORT INFORMATION
  Report Type: 
  Country: None (occurrence: None)
  Receive Date: 20051026
  Receipt Date: 20051012
  Transmission Date: 20060501
  Serious: Yes (Hospitalization)
  Sender: FDA-Public Use
  Company Number: 2005001998

PATIENT
  Age: 53 Year
  Sex: Male

DRUGS (6)
  1. TARCEVA [Suspect]
     Indication: NON-SMALL CELL LUNG CANCER
     Dosage: 125 MG (QD), ORAL
     Route: 048
     Dates: start: 20050801
  2. VERAPAMIL [Concomitant]
  3. METOPROLOL TARTRATE [Concomitant]
  4. CLONIDINE [Concomitant]
  5. FOLIC ACID [Concomitant]
  6. PREVACID [Concomitant]

REACTIONS (9)
  - ACUTE RESPIRATORY FAILURE [None]
  - EPISTAXIS [None]
  - HAEMOLYTIC URAEMIC SYNDROME [None]
  - HAEMOPTYSIS [None]
  - LUNG INFILTRATION [None]
  - PULMONARY ALVEOLAR HAEMORRHAGE [None]
  - PULMONARY MASS [None]
  - RESPIRATORY DISTRESS [None]
  - STAPHYLOCOCCAL INFECTION [None]
